FAERS Safety Report 17800055 (Version 1)
Quarter: 2020Q2

REPORT INFORMATION
  Report Type: Spontaneous
  Country: IR (occurrence: IR)
  Receive Date: 20200518
  Receipt Date: 20200518
  Transmission Date: 20200714
  Serious: Yes (Death, Hospitalization)
  Sender: FDA-Public Use
  Company Number: IR-ANIPHARMA-2020-IR-000015

PATIENT
  Age: 16 Year
  Sex: Female

DRUGS (1)
  1. IBUPROFEN (NON-SPECIFIC) [Suspect]
     Active Substance: IBUPROFEN
     Indication: PRODUCT USED FOR UNKNOWN INDICATION
     Dosage: UNDER 200 MG/KG
     Route: 048

REACTIONS (5)
  - Cardiac arrest [Fatal]
  - Seizure [Fatal]
  - Intentional overdose [Fatal]
  - Respiratory acidosis [Fatal]
  - Acute kidney injury [Fatal]
